FAERS Safety Report 5598206-1 (Version None)
Quarter: 2008Q1

REPORT INFORMATION
  Report Type: 
  Country: None (occurrence: None)
  Receive Date: 20080122
  Receipt Date: 20080116
  Transmission Date: 20080703
  Serious: Yes (Life-Threatening, Other)
  Sender: FDA-Public Use
  Company Number: US-ALLERGAN-0706796US

PATIENT
  Sex: Female
  Weight: 65.306 kg

DRUGS (2)
  1. BOTOX COSMETIC [Suspect]
     Indication: SKIN WRINKLING
     Dosage: 50 UNITS, SINGLE
     Route: 030
     Dates: start: 20070625, end: 20070625
  2. BOTOX COSMETIC [Suspect]

REACTIONS (10)
  - BLOOD PRESSURE DECREASED [None]
  - CONTUSION [None]
  - CONVERSION DISORDER [None]
  - DIZZINESS [None]
  - DYSPNOEA [None]
  - HEADACHE [None]
  - HEART RATE DECREASED [None]
  - HYPERVENTILATION [None]
  - MALAISE [None]
  - NAUSEA [None]
